FAERS Safety Report 4898274-6 (Version None)
Quarter: 2006Q1

REPORT INFORMATION
  Report Type: 
  Country: None (occurrence: None)
  Receive Date: 20060127
  Receipt Date: 20060111
  Transmission Date: 20060701
  Serious: Yes (Other)
  Sender: FDA-Public Use
  Company Number: US200601001998

PATIENT
  Age: 74 Year
  Sex: Male

DRUGS (7)
  1. ZYPREXA [Suspect]
     Indication: AGITATION
     Dosage: 2.5 MG, EACH EVENING, ORAL;5 MG, EACH EVENING, ORAL; 12.5 MG, DAILY (1/D), ORAL
     Route: 048
  2. ZYPREXA [Suspect]
     Indication: AGGRESSION
     Dosage: 5 MG, INTRAMUSCULAR
     Route: 030
  3. SIMVASTATIN [Concomitant]
  4. PRAVASTATIN [Concomitant]
  5. TRAZODONE HCL [Concomitant]
  6. ASA (ASPIRIN (ACETYLSALICYLIC ACID) [Concomitant]
  7. MEMANTINE HCL [Concomitant]

REACTIONS (18)
  - AGGRESSION [None]
  - ATELECTASIS [None]
  - BLOOD CREATINE PHOSPHOKINASE INCREASED [None]
  - BLOOD UREA INCREASED [None]
  - CEREBRAL INFARCTION [None]
  - COGNITIVE DISORDER [None]
  - CONFUSIONAL STATE [None]
  - DELIRIUM [None]
  - GAIT DISTURBANCE [None]
  - HALLUCINATION [None]
  - MENTAL STATUS CHANGES [None]
  - MICROANGIOPATHY [None]
  - NEUROLEPTIC MALIGNANT SYNDROME [None]
  - NEUROMYOPATHY [None]
  - PSYCHOMOTOR HYPERACTIVITY [None]
  - RESTLESSNESS [None]
  - TACHYCARDIA [None]
  - WHITE BLOOD CELL COUNT INCREASED [None]
